FAERS Safety Report 8305842-8 (Version None)
Quarter: 2012Q2

REPORT INFORMATION
  Report Type: 
  Country: None (occurrence: None)
  Receive Date: 20120423
  Receipt Date: 20120419
  Transmission Date: 20120825
  Serious: No
  Sender: FDA-Public Use
  Company Number: US-B.I. PHARMACEUTICALS,INC./RIDGEFIELD-2012-BP-07500BP

PATIENT
  Sex: Female

DRUGS (7)
  1. DYRENIUM [Concomitant]
     Indication: HYPERTENSION
     Dosage: 50 MG
     Route: 048
  2. VITAMIN D [Concomitant]
     Indication: SUPPLEMENTATION THERAPY
  3. RESTASIS [Concomitant]
     Indication: DRY EYE
     Dosage: 1.6 ML
     Dates: start: 20100101
  4. CALCIUM [Concomitant]
     Indication: SUPPLEMENTATION THERAPY
  5. SPIRIVA [Suspect]
     Indication: CHRONIC OBSTRUCTIVE PULMONARY DISEASE
     Dosage: 18 MCG
     Route: 055
     Dates: start: 20120319
  6. FISH OIL [Concomitant]
     Indication: SUPPLEMENTATION THERAPY
  7. NASONEX [Concomitant]
     Indication: HYPERSENSITIVITY
     Route: 045

REACTIONS (1)
  - DRY EYE [None]
